FAERS Safety Report 7007548-4 (Version None)
Quarter: 2010Q3

REPORT INFORMATION
  Report Type: 
  Country: None (occurrence: None)
  Receive Date: 20100922
  Receipt Date: 20100915
  Transmission Date: 20110219
  Serious: Yes (Other)
  Sender: FDA-Public Use
  Company Number: US-PFIZER INC-2010094687

PATIENT
  Sex: Female
  Weight: 63.5 kg

DRUGS (7)
  1. LIPITOR [Suspect]
     Indication: BLOOD CHOLESTEROL INCREASED
     Dosage: UNK
     Route: 048
     Dates: start: 20000101, end: 20100101
  2. COLESTIPOL HYDROCHLORIDE [Suspect]
     Indication: BLOOD CHOLESTEROL INCREASED
     Dosage: 1 G, 1X/DAY
     Route: 048
     Dates: start: 20091001
  3. COLESTIPOL HYDROCHLORIDE [Suspect]
     Dosage: 2 G, 1X/DAY
     Route: 048
     Dates: end: 20100401
  4. COLESTIPOL HYDROCHLORIDE [Suspect]
     Dosage: 4 MG, 1X/DAY
     Dates: start: 20100401, end: 20100601
  5. LISINOPRIL [Concomitant]
     Indication: HYPERTENSION
     Dosage: 40 MG, 1X/DAY
     Route: 048
  6. ATENOLOL [Concomitant]
     Indication: HYPERTENSION
     Dosage: 100 MG, 1X/DAY
     Route: 048
  7. HYDROCHLOROTHIAZIDE [Concomitant]
     Indication: HYPERTENSION
     Dosage: 12.5 MG, 1X/DAY
     Route: 048

REACTIONS (11)
  - ABASIA [None]
  - ARTERIAL OCCLUSIVE DISEASE [None]
  - BLOOD CHOLESTEROL INCREASED [None]
  - BODY HEIGHT DECREASED [None]
  - CEREBROVASCULAR ACCIDENT [None]
  - CONSTIPATION [None]
  - DIARRHOEA [None]
  - DRUG INEFFECTIVE [None]
  - LUNG DISORDER [None]
  - MUSCLE TIGHTNESS [None]
  - MYALGIA [None]
